FAERS Safety Report 5520433-X (Version None)
Quarter: 2007Q4

REPORT INFORMATION
  Report Type: 
  Country: None (occurrence: None)
  Receive Date: 20071119
  Receipt Date: 20071106
  Transmission Date: 20080405
  Serious: Yes (Hospitalization, Other)
  Sender: FDA-Public Use
  Company Number: JP-PFIZER INC-2007079902

PATIENT
  Sex: Male
  Weight: 61.8 kg

DRUGS (8)
  1. UNASYN [Suspect]
     Indication: PNEUMONIA
     Route: 042
     Dates: start: 20070614, end: 20070619
  2. DALACIN S [Suspect]
     Indication: PNEUMONIA
     Route: 042
     Dates: start: 20070614, end: 20070619
  3. PRODIF [Suspect]
     Route: 042
     Dates: start: 20070619, end: 20070620
  4. KLARICID [Suspect]
     Indication: PNEUMONIA
     Route: 048
     Dates: start: 20070616, end: 20070620
  5. BAKUMONDOUTO [Suspect]
     Indication: COUGH
     Route: 048
     Dates: start: 20070616, end: 20070620
  6. SAIKOKEISHITOU [Suspect]
     Indication: PYREXIA
     Route: 048
     Dates: start: 20070616, end: 20070620
  7. MEROPEN [Suspect]
     Route: 042
     Dates: start: 20070619, end: 20070620
  8. ESPO [Concomitant]
     Route: 058

REACTIONS (1)
  - EOSINOPHILIC PNEUMONIA [None]
